FAERS Safety Report 9204254 (Version 1)
Quarter: 2013Q2

REPORT INFORMATION
  Report Type: Spontaneous
  Country: US (occurrence: US)
  Receive Date: 20130402
  Receipt Date: 20130402
  Transmission Date: 20140414
  Serious: Yes (Hospitalization)
  Sender: FDA-Public Use
  Company Number: US-ELI_LILLY_AND_COMPANY-US201303008658

PATIENT
  Sex: Female

DRUGS (12)
  1. FORTEO [Suspect]
     Dosage: UNK
     Dates: start: 2011
  2. LEVOXYL [Concomitant]
  3. TRAMADOL [Concomitant]
  4. ASPIRIN W/MAGNESIUM OXIDE [Concomitant]
  5. AMIODARONE [Concomitant]
  6. CARVEDILOL [Concomitant]
  7. ONDANSETRON [Concomitant]
  8. DOXEPIN [Concomitant]
  9. FUROSEMIDE [Concomitant]
  10. OMEPRAZOLE [Concomitant]
  11. HYOSCYAMINE [Concomitant]
  12. CLONAZEPAM [Concomitant]

REACTIONS (4)
  - Cholelithiasis [Unknown]
  - Pancreatic injury [Unknown]
  - Vomiting [Unknown]
  - Nausea [Not Recovered/Not Resolved]
